FAERS Safety Report 9558923 (Version 1)
Quarter: 2013Q3

REPORT INFORMATION
  Report Type: Spontaneous
  Country: SE (occurrence: SE)
  Receive Date: 20130927
  Receipt Date: 20130927
  Transmission Date: 20140515
  Serious: Yes (Disabling)
  Sender: FDA-Public Use
  Company Number: SE-MERCK-1309SWE011654

PATIENT
  Age: 60 Year
  Sex: Female

DRUGS (19)
  1. JANUVIA [Suspect]
     Indication: TYPE 2 DIABETES MELLITUS
     Dosage: 100 MG, 1 TABLET IN THE MORNING
     Route: 048
     Dates: start: 20130516, end: 20130816
  2. GLIMEPIRIDE [Suspect]
     Indication: TYPE 2 DIABETES MELLITUS
     Dosage: 2 MG, 1 TABLET IN THE MORNING
     Dates: start: 20130509, end: 20130509
  3. PROTOPIC [Concomitant]
  4. AERIUS [Concomitant]
     Route: 048
  5. FOLACIN [Concomitant]
  6. BEHEPAN [Concomitant]
  7. BETNOVATE [Concomitant]
  8. MINDIAB [Concomitant]
  9. DIGOXIN [Concomitant]
  10. EMGESAN [Concomitant]
  11. ALVEDON [Concomitant]
  12. ENALAPRIL MALEATE [Concomitant]
     Route: 048
  13. IMDUR [Concomitant]
  14. DAIVONEX [Concomitant]
  15. SPIRONOLACTONE [Concomitant]
  16. CORTIMYK [Concomitant]
  17. KALCIPOS [Concomitant]
  18. CANODERM [Concomitant]
  19. OFTAGEL [Concomitant]

REACTIONS (5)
  - Tendon pain [Not Recovered/Not Resolved]
  - Oedema [Not Recovered/Not Resolved]
  - Pain in extremity [Not Recovered/Not Resolved]
  - Arthralgia [Not Recovered/Not Resolved]
  - Myalgia [Not Recovered/Not Resolved]
